FAERS Safety Report 6400628-3 (Version None)
Quarter: 2009Q4

REPORT INFORMATION
  Report Type: 
  Country: None (occurrence: None)
  Receive Date: 20091014
  Receipt Date: 20091005
  Transmission Date: 20100525
  Serious: Yes (Hospitalization)
  Sender: FDA-Public Use
  Company Number: PHHO2009DE11684

PATIENT
  Sex: Male

DRUGS (4)
  1. SIMULECT [Suspect]
     Indication: RENAL TRANSPLANT
  2. CYCLOSPORINE [Suspect]
     Indication: RENAL TRANSPLANT
     Dosage: 125 MG, BID
     Dates: start: 20090818, end: 20090917
  3. MYFORTIC [Suspect]
     Indication: RENAL TRANSPLANT
     Dosage: 1080 MG, BID
     Dates: start: 20090818
  4. MYFORTIC [Suspect]
     Dosage: UNKNOWN

REACTIONS (4)
  - BLOOD CREATININE INCREASED [None]
  - HAEMOLYTIC URAEMIC SYNDROME [None]
  - MICROANGIOPATHY [None]
  - THROMBOSIS [None]
